FAERS Safety Report 19886574 (Version 1)
Quarter: 2021Q3

REPORT INFORMATION
  Report Type: Spontaneous
  Country: BR (occurrence: BR)
  Receive Date: 20210927
  Receipt Date: 20210927
  Transmission Date: 20211014
  Serious: Yes (Disabling, Other)
  Sender: FDA-Public Use
  Company Number: BR-ABBVIE-21K-020-4094970-00

PATIENT
  Sex: Male
  Weight: 105 kg

DRUGS (3)
  1. TRAMADOL. [Suspect]
     Active Substance: TRAMADOL
     Indication: PAIN
     Dosage: 1 CAPSULE 2 TIMES A DAY WHEN IN A LOT OF PAIN
     Route: 048
     Dates: start: 2018
  2. HUMIRA [Suspect]
     Active Substance: ADALIMUMAB
     Indication: RHEUMATOID ARTHRITIS
     Route: 058
     Dates: start: 2018
  3. LEFLUNOMIDE. [Concomitant]
     Active Substance: LEFLUNOMIDE
     Indication: RHEUMATOID ARTHRITIS
     Route: 048
     Dates: start: 2018

REACTIONS (11)
  - Erysipelas [Recovering/Resolving]
  - Weight decreased [Recovered/Resolved]
  - Therapeutic response shortened [Not Recovered/Not Resolved]
  - Arthralgia [Not Recovered/Not Resolved]
  - Muscular weakness [Unknown]
  - Dysstasia [Unknown]
  - Joint swelling [Not Recovered/Not Resolved]
  - Wound [Recovering/Resolving]
  - Cardiovascular disorder [Unknown]
  - Cardiac disorder [Unknown]
  - Product storage error [Unknown]

NARRATIVE: CASE EVENT DATE: 2018
